FAERS Safety Report 24893064 (Version 3)
Quarter: 2025Q2

REPORT INFORMATION
  Report Type: Spontaneous
  Country: FR (occurrence: FR)
  Receive Date: 20250128
  Receipt Date: 20250417
  Transmission Date: 20250716
  Serious: Yes (Hospitalization)
  Sender: ASTELLAS
  Company Number: FR-ASTELLAS-2025-AER-005154

PATIENT
  Age: 74 Year
  Sex: Male

DRUGS (1)
  1. XTANDI [Suspect]
     Active Substance: ENZALUTAMIDE
     Indication: Prostate cancer
     Dosage: 4 TABLETS PER DAY IN ONE DOSE
     Route: 048
     Dates: start: 2022, end: 202502

REACTIONS (3)
  - Iron deficiency anaemia [Recovered/Resolved]
  - Anaemia folate deficiency [Unknown]
  - Anaemia vitamin B12 deficiency [Unknown]
